FAERS Safety Report 8059318-6 (Version None)
Quarter: 2012Q1

REPORT INFORMATION
  Report Type: 
  Country: None (occurrence: None)
  Receive Date: 20120112
  Receipt Date: 20111227
  Transmission Date: 20120608
  Serious: Yes (Disabling, Other)
  Sender: FDA-Public Use
  Company Number: 2011NA000116

PATIENT
  Age: 45 Year
  Sex: Male

DRUGS (1)
  1. DICLOFENAC SODIUM [Suspect]
     Indication: PROCEDURAL PAIN
     Dosage: IM
     Route: 030

REACTIONS (9)
  - WRONG TECHNIQUE IN DRUG USAGE PROCESS [None]
  - PAIN [None]
  - EMBOLIA CUTIS MEDICAMENTOSA [None]
  - INJECTION SITE NECROSIS [None]
  - INJURY ASSOCIATED WITH DEVICE [None]
  - ERYTHEMA [None]
  - TOXICITY TO VARIOUS AGENTS [None]
  - ARTERIAL DISORDER [None]
  - SKIN GRAFT [None]
